FAERS Safety Report 8059822-0 (Version None)
Quarter: 2012Q1

REPORT INFORMATION
  Report Type: 
  Country: None (occurrence: None)
  Receive Date: 20120120
  Receipt Date: 20120111
  Transmission Date: 20120608
  Serious: Yes (Other)
  Sender: FDA-Public Use
  Company Number: JP-JNJFOC-20120104682

PATIENT
  Age: 72 Year
  Sex: Female

DRUGS (3)
  1. REMICADE [Suspect]
     Indication: RHEUMATOID ARTHRITIS
     Dosage: THIRD INFUSION
     Route: 042
  2. REMICADE [Suspect]
     Route: 042
     Dates: start: 20110819
  3. METHOTREXATE [Concomitant]
     Dosage: 6 MG/W
     Route: 048
     Dates: start: 20110701

REACTIONS (1)
  - TUBERCULOSIS [None]
